FAERS Safety Report 5665007-5 (Version None)
Quarter: 2008Q1

REPORT INFORMATION
  Report Type: 
  Country: None (occurrence: None)
  Receive Date: 20080314
  Receipt Date: 20080303
  Transmission Date: 20080703
  Serious: Yes (Other)
  Sender: FDA-Public Use
  Company Number: JP-PFIZER INC-2008020404

PATIENT
  Age: 27 Year
  Sex: Female

DRUGS (1)
  1. VFEND [Suspect]
     Dosage: DAILY DOSE:400MG
     Dates: start: 20080219, end: 20080225

REACTIONS (4)
  - BLOOD BILIRUBIN INCREASED [None]
  - GAMMA-GLUTAMYLTRANSFERASE INCREASED [None]
  - PROTHROMBIN LEVEL DECREASED [None]
  - PYREXIA [None]
